FAERS Safety Report 15370760 (Version 1)
Quarter: 2018Q3

REPORT INFORMATION
  Report Type: Spontaneous
  Country: SE (occurrence: SE)
  Receive Date: 20180911
  Receipt Date: 20180911
  Transmission Date: 20181010
  Serious: Yes (Hospitalization)
  Sender: FDA-Public Use
  Company Number: SE-PFIZER INC-2018365222

PATIENT
  Age: 66 Year
  Sex: Female

DRUGS (2)
  1. DALACIN [Suspect]
     Active Substance: CLINDAMYCIN
     Indication: ERYSIPELAS
     Dosage: UNK
     Route: 042
     Dates: start: 20180801, end: 20180808
  2. IPREN [Suspect]
     Active Substance: IBUPROFEN
     Dosage: DOUBLE MAXIMUM DOSE FOR APPROXIMATELY 3 DAYS
     Dates: start: 201807

REACTIONS (2)
  - Rash maculo-papular [Recovering/Resolving]
  - Acute kidney injury [Recovering/Resolving]

NARRATIVE: CASE EVENT DATE: 20180729
